FAERS Safety Report 23605003 (Version 1)
Quarter: 2024Q1

REPORT INFORMATION
  Report Type: Spontaneous
  Country: GB (occurrence: GB)
  Receive Date: 20240307
  Receipt Date: 20240307
  Transmission Date: 20240409
  Serious: Yes (Hospitalization)
  Sender: FDA-Public Use
  Company Number: GB-CELLTRION INC.-2024GB005393

PATIENT

DRUGS (8)
  1. ADALIMUMAB [Suspect]
     Active Substance: ADALIMUMAB\ISOPROPYL ALCOHOL
     Indication: Product used for unknown indication
  2. POLYETHYLENE GLYCOL 3350\POTASSIUM CHLORIDE\SODIUM BICARBONATE\SODIUM [Concomitant]
     Active Substance: POLYETHYLENE GLYCOL 3350\POTASSIUM CHLORIDE\SODIUM BICARBONATE\SODIUM CHLORIDE
     Indication: Constipation
     Dosage: AS NECESSARY, 60 SACHET, (ORANGE FLAVOUR SACHETS)
     Dates: start: 20240115, end: 20240209
  3. CHOLECALCIFEROL [Concomitant]
     Active Substance: CHOLECALCIFEROL
     Dosage: 20000 INTERNATIONAL UNIT, MONTHLY
  4. APIXABAN [Concomitant]
     Active Substance: APIXABAN
     Dosage: 10 MG EVERY 1 DAY, 56 TABLET
     Dates: start: 20231218
  5. AMLODIPINE [Concomitant]
     Active Substance: AMLODIPINE BESYLATE
     Dosage: 10 MG EVERY 1 DAY, 28 TABLET
     Dates: start: 20240115
  6. SIMVASTATIN [Concomitant]
     Active Substance: SIMVASTATIN
     Dosage: 20 MG EVERY 1 DAY,  AT NIGHT, 28 TABLET
     Dates: start: 20240115
  7. BISOPROLOL [Concomitant]
     Active Substance: BISOPROLOL\BISOPROLOL FUMARATE
     Dosage: 2.5 MG EVERY 1 DAY, 28 TABLET
     Dates: start: 20240115
  8. MESALAMINE [Concomitant]
     Active Substance: MESALAMINE
     Dosage: 2 MG EVERY 1 DAY, SACHETS SUGAR FREE
     Dates: start: 20231116

REACTIONS (1)
  - Neoplasm progression [Not Recovered/Not Resolved]
